FAERS Safety Report 14331705 (Version 4)
Quarter: 2018Q2

REPORT INFORMATION
  Report Type: Report from Study
  Country: US (occurrence: US)
  Receive Date: 20171228
  Receipt Date: 20180426
  Transmission Date: 20180711
  Serious: Yes (Hospitalization, Other)
  Sender: FDA-Public Use
  Company Number: US-GILEAD-2017-0312801

PATIENT
  Age: 83 Year
  Sex: Female
  Weight: 56.24 kg

DRUGS (20)
  1. AMBRISENTAN [Suspect]
     Active Substance: AMBRISENTAN
     Indication: PRODUCT USED FOR UNKNOWN INDICATION
     Dosage: 5 MG, UNK
     Route: 065
  2. VITAMIN C [Concomitant]
     Active Substance: ASCORBIC ACID
  3. LIPITOR [Concomitant]
     Active Substance: ATORVASTATIN CALCIUM
  4. ZOLOFT [Concomitant]
     Active Substance: SERTRALINE HYDROCHLORIDE
  5. NEURONTIN [Concomitant]
     Active Substance: GABAPENTIN
  6. SYNTHROID [Concomitant]
     Active Substance: LEVOTHYROXINE SODIUM
  7. LUMIGAN [Concomitant]
     Active Substance: BIMATOPROST
  8. KLONOPIN [Concomitant]
     Active Substance: CLONAZEPAM
  9. ZANAFLEX [Concomitant]
     Active Substance: TIZANIDINE HYDROCHLORIDE
  10. VITAMINS WITH MINERALS [Concomitant]
     Active Substance: MINERALS\VITAMINS
  11. BIOTIN [Concomitant]
     Active Substance: BIOTIN
  12. MELATONIN [Concomitant]
     Active Substance: MELATONIN
  13. VITAMIN E                          /00110501/ [Concomitant]
     Active Substance: TOCOPHEROL
  14. AZOPT [Concomitant]
     Active Substance: BRINZOLAMIDE
  15. VITAMIN D2 [Concomitant]
     Active Substance: ERGOCALCIFEROL
  16. CRESTOR [Concomitant]
     Active Substance: ROSUVASTATIN CALCIUM
  17. CALCIUM [Concomitant]
     Active Substance: CALCIUM
  18. NORVASC [Concomitant]
     Active Substance: AMLODIPINE BESYLATE
  19. ASPIRIN                            /00002701/ [Concomitant]
     Active Substance: ASPIRIN
  20. CYANOCOBALAMIN. [Concomitant]
     Active Substance: CYANOCOBALAMIN

REACTIONS (4)
  - Hypoacusis [Not Recovered/Not Resolved]
  - Pneumonia [Recovered/Resolved]
  - Ear discomfort [Not Recovered/Not Resolved]
  - Dementia Alzheimer^s type [Not Recovered/Not Resolved]
